FAERS Safety Report 9565469 (Version 3)
Quarter: 2014Q1

REPORT INFORMATION
  Report Type: Report from Study
  Country: DE (occurrence: DE)
  Receive Date: 20130930
  Receipt Date: 20140227
  Transmission Date: 20141002
  Serious: Yes (Hospitalization)
  Sender: FDA-Public Use
  Company Number: DE-BAYER-2013-114953

PATIENT
  Sex: Female

DRUGS (10)
  1. SORAFENIB (RAF KINASE INHIBITOR) [Suspect]
     Indication: METASTATIC RENAL CELL CARCINOMA
     Dosage: DAILY DOSE 800 MG
     Route: 048
     Dates: start: 20130719, end: 20130920
  2. PAZOPANIB [Suspect]
     Indication: METASTATIC RENAL CELL CARCINOMA
  3. FRAGMIN [Concomitant]
     Dosage: DAILY DOSE 5000 IE
  4. PANTOZOL [Concomitant]
     Dosage: DAILY DOSE 40 MG
     Dates: start: 201309
  5. AMLODIPIN [Concomitant]
     Dosage: DAILY DOSE 5 MG
  6. CYMBALTA [Concomitant]
     Dosage: DAILY DOSE 60 MG
     Dates: start: 2013
  7. ATACAND [CANDESARTAN CILEXETIL] [Concomitant]
     Dosage: DAILY DOSE 16 MG
  8. BISOPROLOL [Concomitant]
     Dosage: DAILY DOSE 2.5 MG
  9. MOVICOL [Concomitant]
     Dosage: DAILY DOSE 1 BAG
  10. FENTANYL [Suspect]
     Dosage: 15 MG DAILY

REACTIONS (1)
  - Malnutrition [Recovered/Resolved]
